FAERS Safety Report 6538234-2 (Version None)
Quarter: 2010Q1

REPORT INFORMATION
  Report Type: 
  Country: None (occurrence: None)
  Receive Date: 20100112
  Receipt Date: 20100112
  Transmission Date: 20100710
  Serious: Yes (Life-Threatening)
  Sender: FDA-Public Use
  Company Number: None

PATIENT
  Age: 62 Year
  Sex: Female
  Weight: 70.3075 kg

DRUGS (1)
  1. PROAIR HFA [Suspect]
     Indication: VIRAL INFECTION
     Dosage: INHALER--2 PUFFS EVERY 4 HOURS PO (1 DOSAGE)
     Route: 048
     Dates: start: 20100111, end: 20100111

REACTIONS (5)
  - BRONCHOSPASM [None]
  - CHEST PAIN [None]
  - COUGH [None]
  - DYSPNOEA [None]
  - PAIN IN EXTREMITY [None]
